FAERS Safety Report 20883322 (Version 1)
Quarter: 2022Q2

REPORT INFORMATION
  Report Type: Spontaneous
  Country: ES (occurrence: ES)
  Receive Date: 20220527
  Receipt Date: 20220527
  Transmission Date: 20220721
  Serious: Yes (Hospitalization)
  Sender: FDA-Public Use
  Company Number: ES-MYLANLABS-2022M1039329

PATIENT
  Age: 43 Year
  Sex: Male
  Weight: 83 kg

DRUGS (19)
  1. LOPINAVIR\RITONAVIR [Suspect]
     Active Substance: LOPINAVIR\RITONAVIR
     Indication: COVID-19 pneumonia
     Dosage: UNK
     Route: 065
     Dates: start: 2020
  2. AZITHROMYCIN [Suspect]
     Active Substance: AZITHROMYCIN
     Indication: COVID-19 pneumonia
     Dosage: 500 MILLIGRAM
     Route: 065
     Dates: start: 2020
  3. EPINEPHRINE [Suspect]
     Active Substance: EPINEPHRINE
     Indication: Haemodynamic instability
     Dosage: 0.2 MICROGRAM/KILOGRAM, QMINUTE (PERFUSION)
     Route: 065
     Dates: start: 2020
  4. EPINEPHRINE [Suspect]
     Active Substance: EPINEPHRINE
     Dosage: PERFUSION INITIAL DOSAGE NOT STATED
     Route: 065
     Dates: start: 2020
  5. ENOXAPARIN [Suspect]
     Active Substance: ENOXAPARIN
     Indication: Fibrin D dimer increased
     Dosage: 40 MILLIGRAM, BID (12-HOURS)
     Route: 065
     Dates: start: 2020
  6. ENOXAPARIN [Suspect]
     Active Substance: ENOXAPARIN
     Dosage: UNK (DOSE INCREASED)
     Route: 065
     Dates: start: 2020
  7. NOREPINEPHRINE [Suspect]
     Active Substance: NOREPINEPHRINE
     Indication: Haemodynamic instability
     Dosage: PERFUSION
     Route: 065
     Dates: start: 2020
  8. REMDESIVIR [Suspect]
     Active Substance: REMDESIVIR
     Indication: COVID-19 pneumonia
     Dosage: 100 MILLIGRAM
     Route: 065
     Dates: start: 2020
  9. CHLOROQUINE [Suspect]
     Active Substance: CHLOROQUINE
     Indication: COVID-19 pneumonia
     Dosage: 200 MILLIGRAM
     Route: 065
     Dates: start: 2020
  10. TOCILIZUMAB [Suspect]
     Active Substance: TOCILIZUMAB
     Indication: COVID-19 pneumonia
     Dosage: 400 MILLIGRAM (2 DOSES)
     Route: 065
     Dates: start: 2020
  11. METHYLPREDNISOLONE [Suspect]
     Active Substance: METHYLPREDNISOLONE
     Indication: COVID-19 pneumonia
     Dosage: 1 MILLIGRAM/KILOGRAM, QD
     Route: 065
     Dates: start: 2020
  12. NITRIC OXIDE [Concomitant]
     Active Substance: NITRIC OXIDE
     Indication: Hypoxia
     Dosage: AT A CONCENTRATION OF 20 PARTS PER MILLION
     Route: 065
     Dates: start: 2020
  13. NITRIC OXIDE [Concomitant]
     Active Substance: NITRIC OXIDE
     Dosage: UNK, DOSE DECREASED
     Route: 065
     Dates: start: 2020
  14. MILRINONE [Concomitant]
     Active Substance: MILRINONE
     Indication: Ventricular dysfunction
     Dosage: UNK
     Route: 065
     Dates: start: 2020
  15. MEROPENEM [Concomitant]
     Active Substance: MEROPENEM
     Indication: Enterococcal bacteraemia
     Dosage: UNK
     Route: 065
     Dates: start: 2020
  16. AMPICILLIN [Concomitant]
     Active Substance: AMPICILLIN
     Indication: Enterococcal bacteraemia
     Dosage: UNK
     Route: 065
     Dates: start: 2020
  17. ANIDULAFUNGIN [Concomitant]
     Active Substance: ANIDULAFUNGIN
     Indication: Candida infection
     Dosage: UNK
     Route: 065
     Dates: start: 2020
  18. HEPARIN [Concomitant]
     Active Substance: HEPARIN SODIUM
     Indication: Pulmonary embolism
     Dosage: 1000 INTERNATIONAL UNIT, QH
     Route: 065
     Dates: start: 2020, end: 2020
  19. ALTEPLASE [Concomitant]
     Active Substance: ALTEPLASE
     Indication: Pulmonary embolism
     Dosage: 100 MILLIGRAM, (2-HOUR PERFUSION)
     Route: 065
     Dates: start: 2020

REACTIONS (2)
  - Drug ineffective [Unknown]
  - Off label use [Unknown]

NARRATIVE: CASE EVENT DATE: 20200101
